FAERS Safety Report 10225393 (Version 5)
Quarter: 2015Q2

REPORT INFORMATION
  Report Type: Spontaneous
  Country: US (occurrence: US)
  Receive Date: 20140609
  Receipt Date: 20150609
  Transmission Date: 20150821
  Serious: Yes (Hospitalization, Other)
  Sender: FDA-Public Use
  Company Number: US-BAYER-2014-084630

PATIENT
  Age: 30 Year
  Sex: Female
  Weight: 68.93 kg

DRUGS (9)
  1. LEVOXYL [Concomitant]
     Active Substance: LEVOTHYROXINE SODIUM
     Dosage: UNK
     Dates: start: 1986
  2. MIRENA [Suspect]
     Active Substance: LEVONORGESTREL
     Indication: CONTRACEPTION
     Dosage: 20 MCG/24HR, CONT
     Route: 015
     Dates: start: 20081023, end: 20100524
  3. ZYRTEC [Concomitant]
     Active Substance: CETIRIZINE HYDROCHLORIDE
     Dosage: 10 MG, DAILY
     Dates: start: 20100412
  4. MOTRIN [Concomitant]
     Active Substance: IBUPROFEN
     Dosage: 800 MG, Q3HR AS NEEDED
     Dates: start: 20100412
  5. FLONASE [Concomitant]
     Active Substance: FLUTICASONE PROPIONATE
     Dosage: 1 SPRAY DAILY
     Dates: start: 2007, end: 2014
  6. ZADITOR [Concomitant]
     Active Substance: KETOTIFEN FUMARATE
     Dosage: 1 GTT, BOTH EYES Q 8H
     Dates: start: 20100412
  7. ESTRACE [Concomitant]
     Active Substance: ESTRADIOL
     Dosage: 0.1 MG/GM DAILY
     Route: 067
     Dates: start: 20100412
  8. SYNTHROID [Concomitant]
     Active Substance: LEVOTHYROXINE SODIUM
     Indication: HYPOTHYROIDISM
     Dosage: 137 ?G, DAILY
     Dates: start: 1986
  9. T3 [Concomitant]
     Active Substance: LIOTHYRONINE SODIUM
     Dosage: UNK
     Dates: start: 2010

REACTIONS (11)
  - Device dislocation [None]
  - Emotional distress [None]
  - Device breakage [None]
  - Injury [None]
  - Depression [None]
  - Complication of device removal [None]
  - Device difficult to use [None]
  - Uterine perforation [None]
  - Pain [None]
  - Anxiety [None]
  - Infertility female [None]

NARRATIVE: CASE EVENT DATE: 201004
